FAERS Safety Report 6256772-7 (Version None)
Quarter: 2009Q3

REPORT INFORMATION
  Report Type: 
  Country: None (occurrence: None)
  Receive Date: 20090706
  Receipt Date: 20090624
  Transmission Date: 20100115
  Serious: Yes (Other)
  Sender: FDA-Public Use
  Company Number: US-BIOGENIDEC-2009BI019847

PATIENT
  Age: 57 Year
  Sex: Female

DRUGS (3)
  1. AVONEX [Suspect]
     Indication: MULTIPLE SCLEROSIS
     Route: 030
  2. AVONEX [Suspect]
     Route: 030
  3. AVONEX [Suspect]
     Route: 030
     Dates: start: 20080401

REACTIONS (5)
  - BRAIN NEOPLASM MALIGNANT [None]
  - GALLBLADDER CANCER [None]
  - LUNG NEOPLASM MALIGNANT [None]
  - LYMPHOMA [None]
  - SKIN CANCER [None]
